FAERS Safety Report 9307223 (Version 3)
Quarter: 2013Q4

REPORT INFORMATION
  Report Type: Report from Study
  Country: BR (occurrence: BR)
  Receive Date: 20130524
  Receipt Date: 20131118
  Transmission Date: 20140711
  Serious: Yes (Other)
  Sender: FDA-Public Use
  Company Number: BR-ROCHE-1227494

PATIENT
  Age: 65 Year
  Sex: Female

DRUGS (1)
  1. RANIBIZUMAB [Suspect]
     Indication: AGE-RELATED MACULAR DEGENERATION
     Route: 050
     Dates: start: 2012

REACTIONS (4)
  - Blindness [Unknown]
  - Ocular hyperaemia [Unknown]
  - Visual acuity reduced [Unknown]
  - Eye pain [Unknown]
